FAERS Safety Report 5308141-1 (Version None)
Quarter: 2007Q2

REPORT INFORMATION
  Report Type: 
  Country: None (occurrence: None)
  Receive Date: 20070426
  Receipt Date: 20070418
  Transmission Date: 20071010
  Serious: Yes (Other)
  Sender: FDA-Public Use
  Company Number: PHBS2006JP18685

PATIENT
  Age: 1 Year
  Sex: Female

DRUGS (2)
  1. NEORAL [Suspect]
     Indication: JUVENILE ARTHRITIS
     Dosage: UNK, UNK
     Route: 048
  2. METHYLPREDNISOLONE 16MG TAB [Suspect]
     Indication: JUVENILE ARTHRITIS
     Dosage: UNK, UNK
     Route: 042

REACTIONS (6)
  - CYTOMEGALOVIRUS INFECTION [None]
  - DRUG INEFFECTIVE [None]
  - HAEMODIALYSIS [None]
  - HISTIOCYTOSIS HAEMATOPHAGIC [None]
  - PYREXIA [None]
  - RASH [None]
